FAERS Safety Report 9523879 (Version 1)
Quarter: 2013Q1

REPORT INFORMATION
  Report Type: Spontaneous
  Country: US (occurrence: None)
  Receive Date: 20130305
  Receipt Date: 20130305
  Transmission Date: 20140127
  Serious: Yes (Other)
  Sender: FDA-Public Use
  Company Number: 163-21880-12031842

PATIENT
  Age: 70 Year
  Sex: Male
  Weight: 99.11 kg

DRUGS (6)
  1. REVLIMID (LENALIDOMIDE) (CAPSULES) [Suspect]
     Indication: PLASMA CELL MYELOMA
     Dosage: 10 MG, 1 IN 1 D, PO
     Route: 048
     Dates: start: 201004, end: 2010
  2. COUMADIN (WARFARIN SODIUM) (UNKNOWN) [Concomitant]
  3. JANUVIA (SITAGLIPTIN PHOSPHATE) (UNKNOWN) [Concomitant]
  4. HYZAAR (HYZAAR) (UNKNOWN) [Concomitant]
  5. GLUCOPHAGE (METFORMIN) (UNKNOWN) [Concomitant]
  6. DIABETA (GLIBENCLAMIDE) (UNKNOWN) [Concomitant]

REACTIONS (1)
  - Rash pruritic [None]
